FAERS Safety Report 9240149 (Version 1)
Quarter: 2013Q2

REPORT INFORMATION
  Report Type: Spontaneous
  Country: JP (occurrence: None)
  Receive Date: 20130417
  Receipt Date: 20130417
  Transmission Date: 20140414
  Serious: Yes (Other)
  Sender: FDA-Public Use
  Company Number: CIP-2013-00116

PATIENT
  Sex: 0

DRUGS (4)
  1. IRINOTECAN INJECTION (IRINOTECAN) [Suspect]
     Indication: SMALL CELL LUNG CANCER
     Dosage: 1 AND 8  EVERY 4 WKS
  2. NEDAPLATIN [Suspect]
     Indication: SMALL CELL LUNG CANCER
     Dosage: 1 AND 8 EVERY 4 WKS
  3. DEXAMETHASONE (DEXAMETHASONE) [Concomitant]
  4. 5-HT3 ANTAGONIST (SEROTONIN (5HTS) ANTAGONISTS) [Concomitant]

REACTIONS (2)
  - Mouth haemorrhage [None]
  - Thrombocytopenia [None]
